FAERS Safety Report 9886397 (Version 1)
Quarter: 2014Q1

REPORT INFORMATION
  Report Type: Spontaneous
  Country: US (occurrence: US)
  Receive Date: 20140210
  Receipt Date: 20140210
  Transmission Date: 20141002
  Serious: Yes (Other)
  Sender: FDA-Public Use
  Company Number: US-PFIZER INC-2014035924

PATIENT
  Sex: Female

DRUGS (1)
  1. MISOPROSTOL [Suspect]
     Indication: COMPLICATION OF PREGNANCY
     Dosage: UNK

REACTIONS (2)
  - Off label use [Unknown]
  - Circulatory collapse [Unknown]
